FAERS Safety Report 9760405 (Version 1)
Quarter: 2013Q4

REPORT INFORMATION
  Report Type: Spontaneous
  Country: BR (occurrence: BR)
  Receive Date: 20131216
  Receipt Date: 20131216
  Transmission Date: 20140711
  Serious: Yes (Disabling, Other)
  Sender: FDA-Public Use
  Company Number: BR-BAYER-2013-149320

PATIENT
  Sex: Female

DRUGS (1)
  1. PROMIRA [Suspect]
     Indication: NASOPHARYNGITIS
     Dosage: 1 DF, OM
     Route: 048
     Dates: start: 201311, end: 201311

REACTIONS (6)
  - Uveitis [None]
  - Eye pain [None]
  - Ocular hyperaemia [None]
  - Iridoplegia [None]
  - Photophobia [None]
  - Visual impairment [None]
